FAERS Safety Report 10229607 (Version 1)
Quarter: 2014Q2

REPORT INFORMATION
  Report Type: Spontaneous
  Country: US (occurrence: None)
  Receive Date: 20140610
  Receipt Date: 20140610
  Transmission Date: 20141212
  Serious: Yes (Other)
  Sender: FDA-Public Use
  Company Number: None

PATIENT
  Age: 32 Year
  Sex: Female
  Weight: 62.14 kg

DRUGS (4)
  1. HYDROCHLOROTHIAZIDE [Suspect]
     Indication: OFF LABEL USE
     Route: 048
     Dates: start: 20140509, end: 20140527
  2. HYDROCHLOROTHIAZIDE [Suspect]
     Indication: URINE CALCIUM INCREASED
     Route: 048
     Dates: start: 20140509, end: 20140527
  3. ESCITALOPRAM [Concomitant]
  4. SYMBICORT [Concomitant]

REACTIONS (6)
  - Nausea [None]
  - Headache [None]
  - Decreased appetite [None]
  - Dizziness [None]
  - Fatigue [None]
  - Blood pressure decreased [None]
